FAERS Safety Report 14617462 (Version 1)
Quarter: 2018Q1

REPORT INFORMATION
  Report Type: Spontaneous
  Country: GB (occurrence: GB)
  Receive Date: 20180309
  Receipt Date: 20180309
  Transmission Date: 20180509
  Serious: Yes (Disabling, Other)
  Sender: FDA-Public Use
  Company Number: GB-AUROBINDO-AUR-APL-2018-011881

PATIENT
  Age: 38 Year
  Sex: Male
  Weight: 77 kg

DRUGS (3)
  1. OLANZAPINE. [Concomitant]
     Active Substance: OLANZAPINE
     Route: 065
  2. QUETIAPINE. [Suspect]
     Active Substance: QUETIAPINE
     Indication: BIPOLAR DISORDER
     Route: 065
  3. MIRTAZAPINE. [Concomitant]
     Active Substance: MIRTAZAPINE
     Route: 065

REACTIONS (3)
  - Deep vein thrombosis [Recovered/Resolved]
  - Malaise [Unknown]
  - Mental disorder [Unknown]

NARRATIVE: CASE EVENT DATE: 20171110
